FAERS Safety Report 5982536-5 (Version None)
Quarter: 2008Q4

REPORT INFORMATION
  Report Type: 
  Country: None (occurrence: None)
  Receive Date: 20081205
  Receipt Date: 20081205
  Transmission Date: 20090506
  Serious: No
  Sender: FDA-Public Use
  Company Number: None

PATIENT
  Age: 79 Year
  Sex: Female
  Weight: 60.782 kg

DRUGS (1)
  1. CLINDAMYCIN HYDROCHLORIDE [Suspect]
     Indication: TOOTH INFECTION
     Dosage: 4 4 TIMES A DAY PO
     Route: 048
     Dates: start: 20081125, end: 20081202

REACTIONS (3)
  - DIARRHOEA [None]
  - MEMORY IMPAIRMENT [None]
  - THINKING ABNORMAL [None]
